FAERS Safety Report 9580992 (Version 1)
Quarter: 2013Q4

REPORT INFORMATION
  Report Type: Report from Study
  Country: FR (occurrence: FR)
  Receive Date: 20131002
  Receipt Date: 20131002
  Transmission Date: 20140711
  Serious: Yes (Hospitalization, Other)
  Sender: FDA-Public Use
  Company Number: FR-009507513-1309FRA012637

PATIENT
  Age: 48 Year
  Sex: Male

DRUGS (14)
  1. REBETOL [Suspect]
     Indication: HEPATITIS C
     Dosage: 1200 MG, QD
     Route: 048
     Dates: start: 20120724, end: 20130517
  2. METHADONE HYDROCHLORIDE [Suspect]
     Indication: DRUG WITHDRAWAL MAINTENANCE THERAPY
     Dosage: 20 MG, QD
     Route: 048
     Dates: start: 20071025
  3. PEGINTERFERON ALFA-2A [Suspect]
     Indication: HEPATITIS C
     Dosage: 180 MICROGRAM, QW
     Route: 058
     Dates: start: 20120724, end: 20130515
  4. TELAPREVIR [Suspect]
     Indication: HEPATITIS C
     Dosage: 2250 MG, QD
     Route: 048
     Dates: start: 20120724, end: 20121024
  5. OXYGEN [Concomitant]
     Dosage: 0.5 UNK, UNK
     Route: 045
     Dates: start: 2011
  6. INTELENCE [Concomitant]
     Indication: HIV INFECTION
     Dosage: 20 MG, UNK
     Route: 048
     Dates: start: 20090630
  7. NORVIR [Concomitant]
     Indication: HIV INFECTION
     Dosage: 100 MG, QD
     Route: 048
     Dates: start: 20120705
  8. REYATAZ [Concomitant]
     Indication: HIV INFECTION
     Dosage: 300 MG, QD
     Route: 048
     Dates: start: 20120705
  9. SEROPRAM [Concomitant]
     Indication: ANXIETY
     Dosage: 20 MG, QD
     Dates: start: 20080626
  10. SEROPRAM [Concomitant]
     Indication: DEPRESSION
  11. BRICANYL [Concomitant]
     Indication: CHRONIC OBSTRUCTIVE PULMONARY DISEASE
     Dosage: 30 MG, QD
  12. SERETIDE [Concomitant]
     Dosage: UNK
     Route: 065
     Dates: start: 20130816
  13. LEXOMIL [Concomitant]
     Indication: ANXIETY
     Dosage: UNK, PRN
  14. HALDOL [Concomitant]
     Indication: ANXIETY
     Dosage: 1 MG, QD
     Route: 048

REACTIONS (3)
  - Overdose [Unknown]
  - Anaemia [Unknown]
  - Thrombocytopenia [Unknown]
